FAERS Safety Report 9486898 (Version 2)
Quarter: 2013Q3

REPORT INFORMATION
  Report Type: Spontaneous
  Country: US (occurrence: US)
  Receive Date: 20130829
  Receipt Date: 20130916
  Transmission Date: 20140515
  Serious: Yes (Other)
  Sender: FDA-Public Use
  Company Number: US-ROCHE-1266310

PATIENT
  Age: 62 Year
  Sex: Female
  Weight: 61.29 kg

DRUGS (4)
  1. BONIVA [Suspect]
     Indication: OSTEOPENIA
     Route: 048
     Dates: start: 20130805, end: 20130805
  2. ZOCOR [Concomitant]
     Indication: BLOOD CHOLESTEROL
     Route: 065
  3. ZOCOR [Concomitant]
     Route: 065
  4. LOVAZA [Concomitant]
     Route: 048

REACTIONS (7)
  - Chest pain [Unknown]
  - Headache [Unknown]
  - Influenza like illness [Unknown]
  - Insomnia [Recovered/Resolved]
  - Nausea [Unknown]
  - Dizziness [Recovered/Resolved]
  - Pain [Unknown]
